FAERS Safety Report 20299602 (Version 1)
Quarter: 2022Q1

REPORT INFORMATION
  Report Type: Report from Study
  Country: RU (occurrence: RU)
  Receive Date: 20220105
  Receipt Date: 20220105
  Transmission Date: 20220423
  Serious: Yes (Other)
  Sender: FDA-Public Use
  Company Number: RU-ABBVIE-22K-251-4220646-00

PATIENT

DRUGS (1)
  1. VALPROIC ACID [Suspect]
     Active Substance: VALPROIC ACID
     Indication: Product used for unknown indication
     Dosage: 150 TO 300 MG / 2 TIMES A DAY
     Route: 065

REACTIONS (4)
  - Seizure [Recovering/Resolving]
  - Eosinophil count increased [Recovering/Resolving]
  - Hypersensitivity [Recovering/Resolving]
  - Weight increased [Recovering/Resolving]

NARRATIVE: CASE EVENT DATE: 20180901
